FAERS Safety Report 6395670-5 (Version None)
Quarter: 2009Q4

REPORT INFORMATION
  Report Type: 
  Country: None (occurrence: None)
  Receive Date: 20091009
  Receipt Date: 20090929
  Transmission Date: 20100525
  Serious: Yes (Other)
  Sender: FDA-Public Use
  Company Number: PHHY2009MX42509

PATIENT
  Age: 71 Year
  Sex: Female

DRUGS (2)
  1. ACLASTA [Suspect]
     Indication: OSTEOPOROSIS
     Dosage: 1 INJECTION (5 MG/ 100 ML) PER YEAR
     Route: 042
     Dates: start: 20071004
  2. ACLASTA [Suspect]
     Dosage: 1 INJECTION (5 MG/ 100 ML) PER YEAR
     Route: 042
     Dates: start: 20081007

REACTIONS (2)
  - FACIAL PALSY [None]
  - OPHTHALMOPLEGIA [None]
